FAERS Safety Report 6029796-2 (Version None)
Quarter: 2008Q4

REPORT INFORMATION
  Report Type: 
  Country: None (occurrence: None)
  Receive Date: 20081222
  Receipt Date: 20080929
  Transmission Date: 20090506
  Serious: No
  Sender: FDA-Public Use
  Company Number: US-WYE-H06193808

PATIENT
  Age: 83 Year
  Sex: Female

DRUGS (1)
  1. PRISTIQ [Suspect]
     Indication: DEPRESSION
     Dosage: 50 MG - FREQUENCY UNSPECIFIED, ORAL
     Route: 048
     Dates: start: 20080901, end: 20080929

REACTIONS (1)
  - HALLUCINATION, AUDITORY [None]
